FAERS Safety Report 22259303 (Version 1)
Quarter: 2023Q2

REPORT INFORMATION
  Report Type: Spontaneous
  Country: PT (occurrence: PT)
  Receive Date: 20230427
  Receipt Date: 20230427
  Transmission Date: 20230721
  Serious: Yes (Other)
  Sender: FDA-Public Use
  Company Number: PT-VIIV HEALTHCARE LIMITED-PT2023EME058634

PATIENT

DRUGS (12)
  1. KIVEXA [Suspect]
     Active Substance: ABACAVIR SULFATE\LAMIVUDINE
     Indication: HIV infection
     Dosage: UNK
     Dates: start: 1996
  2. LAMIVUDINE [Suspect]
     Active Substance: LAMIVUDINE
     Indication: HIV infection
     Dosage: UNK
     Dates: start: 2001
  3. ZIDOVUDINE [Suspect]
     Active Substance: ZIDOVUDINE
     Indication: HIV infection
     Dosage: UNK
     Dates: start: 1996
  4. NELFINAVIR [Suspect]
     Active Substance: NELFINAVIR
     Indication: HIV infection
     Dosage: UNK
     Dates: start: 1996
  5. EFAVIRENZ [Suspect]
     Active Substance: EFAVIRENZ
     Indication: HIV infection
     Dosage: UNK
     Dates: start: 2001
  6. STAVUDINE [Suspect]
     Active Substance: STAVUDINE
     Indication: HIV infection
     Dosage: UNK
     Dates: start: 2001
  7. ZALCITABINE [Suspect]
     Active Substance: ZALCITABINE
     Indication: HIV infection
     Dosage: UNK
     Dates: start: 1996
  8. INDINAVIR [Suspect]
     Active Substance: INDINAVIR
     Indication: HIV infection
     Dosage: UNK
     Dates: start: 1996
  9. FENOFIBRATE [Suspect]
     Active Substance: FENOFIBRATE
     Indication: Product used for unknown indication
     Dosage: UNK 267
  10. INDAPAMIDE [Suspect]
     Active Substance: INDAPAMIDE
     Indication: Product used for unknown indication
     Dosage: UNK 1.5
  11. METFORMIN HYDROCHLORIDE\VILDAGLIPTIN [Suspect]
     Active Substance: METFORMIN HYDROCHLORIDE\VILDAGLIPTIN
     Indication: Product used for unknown indication
     Dosage: UNK 850/50
  12. GLICLAZIDE [Suspect]
     Active Substance: GLICLAZIDE
     Indication: Product used for unknown indication
     Dosage: UNK

REACTIONS (7)
  - Diabetes mellitus [Unknown]
  - Lipodystrophy acquired [Unknown]
  - Hypersensitivity [Unknown]
  - Hypertension [Unknown]
  - Dyslipidaemia [Unknown]
  - Paraesthesia [Unknown]
  - Gastric disorder [Unknown]
